FAERS Safety Report 24123900 (Version 1)
Quarter: 2024Q3

REPORT INFORMATION
  Report Type: Spontaneous
  Country: US (occurrence: US)
  Receive Date: 20240723
  Receipt Date: 20240723
  Transmission Date: 20241017
  Serious: No
  Sender: OTSUKA
  Company Number: US-OTSUKA-2024_016085

PATIENT
  Age: 27 Year
  Sex: Female
  Weight: 82.36 kg

DRUGS (1)
  1. REXULTI [Suspect]
     Active Substance: BREXPIPRAZOLE
     Indication: Adjuvant therapy
     Dosage: 1 MG
     Route: 065
     Dates: start: 202308

REACTIONS (1)
  - Weight increased [Unknown]
